FAERS Safety Report 8415010-7 (Version None)
Quarter: 2012Q2

REPORT INFORMATION
  Report Type: 
  Country: None (occurrence: None)
  Receive Date: 20120606
  Receipt Date: 20120523
  Transmission Date: 20120825
  Serious: Yes (Other)
  Sender: FDA-Public Use
  Company Number: HU-RANBAXY-2012RR-56638

PATIENT
  Age: 37 Year
  Sex: Female
  Weight: 70 kg

DRUGS (1)
  1. SOTRET [Suspect]
     Indication: ACNE
     Dosage: 30 MG/DIE - 10MG/ DIE
     Route: 065
     Dates: end: 20120331

REACTIONS (1)
  - MATERNAL EXPOSURE BEFORE PREGNANCY [None]
